FAERS Safety Report 17118998 (Version 1)
Quarter: 2019Q4

REPORT INFORMATION
  Report Type: Spontaneous
  Country: US (occurrence: US)
  Receive Date: 20191206
  Receipt Date: 20191206
  Transmission Date: 20200122
  Serious: No
  Sender: FDA-Public Use
  Company Number: US-UCBSA-2017034334

PATIENT
  Age: 87 Year
  Sex: Female
  Weight: 49.8 kg

DRUGS (4)
  1. COZAAR [Concomitant]
     Active Substance: LOSARTAN POTASSIUM
     Indication: PRODUCT USED FOR UNKNOWN INDICATION
  2. NEUPRO [Suspect]
     Active Substance: ROTIGOTINE
     Indication: PARKINSON^S DISEASE
     Dosage: 2 MG, ONCE DAILY (QD)
     Dates: start: 20170731, end: 2017
  3. SYNTHROID [Concomitant]
     Active Substance: LEVOTHYROXINE SODIUM
     Indication: PRODUCT USED FOR UNKNOWN INDICATION
  4. NEUPRO [Suspect]
     Active Substance: ROTIGOTINE
     Dosage: 4 MG, ONCE DAILY (QD)
     Dates: start: 2017

REACTIONS (1)
  - Paraesthesia [Not Recovered/Not Resolved]

NARRATIVE: CASE EVENT DATE: 20170814
